FAERS Safety Report 10815312 (Version 1)
Quarter: 2015Q1

REPORT INFORMATION
  Report Type: Report from Study
  Country: US (occurrence: US)
  Receive Date: 20150218
  Receipt Date: 20150218
  Transmission Date: 20150721
  Serious: Yes (Death, Other)
  Sender: FDA-Public Use
  Company Number: US-CELGENE-163-21880-14012578

PATIENT

DRUGS (3)
  1. REVLIMID [Suspect]
     Active Substance: LENALIDOMIDE
     Indication: PLASMA CELL MYELOMA
     Dosage: 25 MILLIGRAM
     Route: 048
  2. INDATUXIMAB RAVTANSINE [Suspect]
     Active Substance: INDATUXIMAB RAVTANSINE
     Indication: PLASMA CELL MYELOMA
     Dosage: 80-120 MG/M2
     Route: 065
  3. DEXAMETHASONE. [Suspect]
     Active Substance: DEXAMETHASONE
     Indication: PLASMA CELL MYELOMA
     Route: 065

REACTIONS (6)
  - Nausea [Unknown]
  - Hypokalaemia [Unknown]
  - Death [Fatal]
  - Fatigue [Unknown]
  - Plasma cell myeloma [Unknown]
  - Diarrhoea [Unknown]
